FAERS Safety Report 9820181 (Version 1)
Quarter: 2013Q4

REPORT INFORMATION
  Report Type: Spontaneous
  Country: US (occurrence: None)
  Receive Date: 20131223
  Receipt Date: 20131223
  Transmission Date: 20140711
  Serious: Yes (Other)
  Sender: FDA-Public Use
  Company Number: 218468

PATIENT
  Age: 39 Year
  Sex: Female

DRUGS (1)
  1. PICATO [Suspect]
     Indication: ACTINIC KERATOSIS
     Dates: start: 20120420, end: 20120422

REACTIONS (7)
  - Rash pustular [None]
  - Pain [None]
  - Pruritus [None]
  - Skin burning sensation [None]
  - Erythema [None]
  - Post inflammatory pigmentation change [None]
  - Scab [None]
